FAERS Safety Report 9848853 (Version 1)
Quarter: 2013Q4

REPORT INFORMATION
  Report Type: Spontaneous
  Country: US (occurrence: None)
  Receive Date: 20131226
  Receipt Date: 20131226
  Transmission Date: 20140711
  Serious: Yes (Other)
  Sender: FDA-Public Use
  Company Number: PHEH2012US015847

PATIENT
  Age: 33 Year
  Sex: Male
  Weight: 83 kg

DRUGS (1)
  1. EXTAVIA [Suspect]
     Indication: MULTIPLE SCLEROSIS
     Route: 058
     Dates: start: 20120522

REACTIONS (3)
  - Convulsion [None]
  - Tongue biting [None]
  - Speech disorder [None]
